FAERS Safety Report 4438696-0 (Version None)
Quarter: 2004Q3

REPORT INFORMATION
  Report Type: 
  Country: None (occurrence: None)
  Receive Date: 20040830
  Receipt Date: 20040830
  Transmission Date: 20050211
  Serious: Yes (Hospitalization)
  Sender: FDA-Public Use
  Company Number: None

PATIENT
  Age: 59 Year
  Sex: Female
  Weight: 54.4316 kg

DRUGS (12)
  1. TOPOTECAN [Suspect]
     Indication: SMALL CELL LUNG CANCER STAGE UNSPECIFIED
     Dosage: 1.5 MG /M2, DAY 1-5 , IV
     Route: 042
     Dates: start: 20040802
  2. NEURONTIN [Concomitant]
  3. BETOPTIC [Concomitant]
  4. TRAVATAN [Concomitant]
  5. ESTRACE VAGINAL [Concomitant]
  6. AVALIDE [Concomitant]
  7. FLONASE [Concomitant]
  8. CARAFATE [Concomitant]
  9. SENNA [Concomitant]
  10. ANZEMET [Concomitant]
  11. ZOFRAN [Concomitant]
  12. DECADRON [Concomitant]

REACTIONS (4)
  - BODY TEMPERATURE INCREASED [None]
  - CLOSTRIDIAL INFECTION [None]
  - FATIGUE [None]
  - NEUTROPENIA [None]
